FAERS Safety Report 14727124 (Version 8)
Quarter: 2019Q2

REPORT INFORMATION
  Report Type: Spontaneous
  Country: US (occurrence: US)
  Receive Date: 20180406
  Receipt Date: 20190408
  Transmission Date: 20190711
  Serious: Yes (Other)
  Sender: FDA-Public Use
  Company Number: US-BRISTOL-MYERS SQUIBB COMPANY-BMS-2018-031827

PATIENT
  Sex: Female
  Weight: 72.57 kg

DRUGS (2)
  1. ORENCIA [Suspect]
     Active Substance: ABATACEPT
     Indication: PRODUCT USED FOR UNKNOWN INDICATION
     Dosage: 125 MG, QWK
     Route: 058
     Dates: start: 201801
  2. ORENCIA [Suspect]
     Active Substance: ABATACEPT
     Indication: RHEUMATOID ARTHRITIS
     Dosage: 125 MG, QWK
     Route: 058
     Dates: start: 201509

REACTIONS (15)
  - Urinary tract infection [Unknown]
  - Arthralgia [Unknown]
  - Ocular hyperaemia [Unknown]
  - Joint injury [Unknown]
  - Oropharyngeal pain [Unknown]
  - Hip fracture [Unknown]
  - Eye haemorrhage [Unknown]
  - Sunburn [Unknown]
  - Sickle cell disease [Unknown]
  - Headache [Unknown]
  - Fall [Unknown]
  - Photosensitivity reaction [Unknown]
  - Sinusitis [Recovering/Resolving]
  - Upper respiratory tract infection [Unknown]
  - Hepatic enzyme increased [Unknown]
